FAERS Safety Report 25247148 (Version 3)
Quarter: 2025Q4

REPORT INFORMATION
  Report Type: Other
  Country: US (occurrence: US)
  Receive Date: 20250428
  Receipt Date: 20251026
  Transmission Date: 20260118
  Serious: No
  Sender: TRAVERE THERAPEUTICS
  Company Number: US-TRAVERE-2025TVT00374

PATIENT
  Age: 36 Year
  Sex: Female

DRUGS (5)
  1. FILSPARI [Suspect]
     Active Substance: SPARSENTAN
     Indication: IgA nephropathy
     Dosage: TAKE 1 TABLET BY MOUTH 1 TIME A DAY FOR DAYS 1-14
     Route: 048
     Dates: start: 202502
  2. FILSPARI [Suspect]
     Active Substance: SPARSENTAN
     Route: 048
     Dates: start: 202502, end: 202508
  3. FILSPARI [Suspect]
     Active Substance: SPARSENTAN
     Route: 048
  4. AMLODIPINE [Suspect]
     Active Substance: AMLODIPINE BESYLATE
     Indication: Product used for unknown indication
  5. TARPEYO [Concomitant]
     Active Substance: BUDESONIDE

REACTIONS (8)
  - Myalgia [Unknown]
  - Arthralgia [Unknown]
  - Pain in extremity [None]
  - Product dose omission issue [Unknown]
  - Peripheral swelling [Recovered/Resolved]
  - Cough [Unknown]
  - Weight increased [Unknown]
  - Swelling face [Unknown]

NARRATIVE: CASE EVENT DATE: 20250801
